FAERS Safety Report 15921586 (Version 1)
Quarter: 2019Q1

REPORT INFORMATION
  Report Type: Spontaneous
  Country: US (occurrence: US)
  Receive Date: 20190205
  Receipt Date: 20190205
  Transmission Date: 20190417
  Serious: Yes (Hospitalization, Other)
  Sender: FDA-Public Use
  Company Number: PHEH2019US004714

PATIENT
  Sex: Female

DRUGS (8)
  1. ZOLEDRONIC ACID [Suspect]
     Active Substance: ZOLEDRONIC ACID
     Indication: OSTEOPOROSIS
     Dosage: UNK
     Route: 041
  2. FASLODEX [Suspect]
     Active Substance: FULVESTRANT
     Indication: PRODUCT USED FOR UNKNOWN INDICATION
     Dosage: UNK
     Route: 065
  3. LETROZOLE. [Suspect]
     Active Substance: LETROZOLE
     Indication: PRODUCT USED FOR UNKNOWN INDICATION
     Dosage: UNK
     Route: 065
  4. IBRANCE [Suspect]
     Active Substance: PALBOCICLIB
     Dosage: 125 MG, QD (FOR 21 DAYS AND OFF FOR 7 DAYS)
     Route: 048
     Dates: start: 20170915
  5. IBRANCE [Suspect]
     Active Substance: PALBOCICLIB
     Indication: BREAST CANCER METASTATIC
     Dosage: 125 MG, QD (FOR 21 DAYS AND OFF FOR 7 DAYS)
     Route: 048
     Dates: start: 201707
  6. IBRANCE [Suspect]
     Active Substance: PALBOCICLIB
     Dosage: 125 MG, QD (FOR 21 DAYS AND OFF FOR 7 DAYS)
     Route: 048
     Dates: start: 20170710
  7. GABAPENTIN. [Concomitant]
     Active Substance: GABAPENTIN
     Indication: NEUROPATHY PERIPHERAL
     Dosage: 2 DF, (AT NIGHT)
     Route: 065
  8. IBRANCE [Suspect]
     Active Substance: PALBOCICLIB
     Dosage: 125 MG, QD (FOR 21 DAYS AND OFF FOR 7 DAYS)
     Route: 048
     Dates: start: 20170818, end: 20170907

REACTIONS (5)
  - Bacterial infection [Recovered/Resolved]
  - Tumour marker increased [Unknown]
  - Pelvic neoplasm [Unknown]
  - Sleep disorder [Unknown]
  - Metastases to spine [Unknown]

NARRATIVE: CASE EVENT DATE: 201707
